FAERS Safety Report 22761592 (Version 6)
Quarter: 2024Q3

REPORT INFORMATION
  Report Type: Report from Study
  Country: US (occurrence: US)
  Receive Date: 20230728
  Receipt Date: 20240715
  Transmission Date: 20241016
  Serious: Yes (Other)
  Sender: ARGENX BVBA
  Company Number: US-ARGENX-2023-ARGX-US001399

PATIENT

DRUGS (3)
  1. EFGARTIGIMOD ALFA-FCAB [Suspect]
     Active Substance: EFGARTIGIMOD ALFA-FCAB
     Indication: Myasthenia gravis
     Dosage: 10 MG/KG
     Route: 042
  2. CIPRO [Suspect]
     Active Substance: CIPROFLOXACIN HYDROCHLORIDE
     Indication: Urinary tract infection
     Dosage: UNK
     Route: 065
  3. HUMAN IMMUNOGLOBULIN G [Suspect]
     Active Substance: HUMAN IMMUNOGLOBULIN G
     Indication: Urinary tract infection
     Dosage: UNK
     Route: 042

REACTIONS (20)
  - Basal cell carcinoma [Unknown]
  - Micrographic skin surgery [Unknown]
  - Nephrolithiasis [Not Recovered/Not Resolved]
  - Myasthenia gravis [Unknown]
  - Illness [Unknown]
  - Fatigue [Unknown]
  - Blood immunoglobulin G decreased [Unknown]
  - Urinary tract infection [Unknown]
  - Sinusitis [Unknown]
  - Electrocardiogram abnormal [Unknown]
  - Adverse drug reaction [Unknown]
  - Asthenia [Not Recovered/Not Resolved]
  - Pyrexia [Unknown]
  - Influenza [Unknown]
  - Urinary tract infection [Recovered/Resolved]
  - Urinary tract infection [Not Recovered/Not Resolved]
  - Fatigue [Unknown]
  - Hypersomnia [Unknown]
  - Therapy interrupted [Unknown]
  - Adverse drug reaction [Unknown]

NARRATIVE: CASE EVENT DATE: 20240202
